FAERS Safety Report 5232614-3 (Version None)
Quarter: 2007Q1

REPORT INFORMATION
  Report Type: 
  Country: None (occurrence: None)
  Receive Date: 20070205
  Receipt Date: 20070130
  Transmission Date: 20070707
  Serious: Yes (Death)
  Sender: FDA-Public Use
  Company Number: 2007-152815-NL

PATIENT
  Age: 16 Month
  Sex: Male

DRUGS (2)
  1. CHORIONIC GONADOTROPIN [Suspect]
     Indication: CRYPTORCHISM
     Route: 030
     Dates: start: 20061211, end: 20061213
  2. GONADORELIN INJ [Concomitant]

REACTIONS (9)
  - CIRCULATORY COLLAPSE [None]
  - COMA [None]
  - DIARRHOEA [None]
  - INTESTINAL ISCHAEMIA [None]
  - PHARMACEUTICAL PRODUCT COMPLAINT [None]
  - POOR QUALITY DRUG ADMINISTERED [None]
  - PYREXIA [None]
  - THERAPEUTIC PRODUCT CONTAMINATION [None]
  - VARICELLA [None]
